FAERS Safety Report 5859685-5 (Version None)
Quarter: 2008Q3

REPORT INFORMATION
  Report Type: 
  Country: None (occurrence: None)
  Receive Date: 20080818
  Receipt Date: 20080714
  Transmission Date: 20090109
  Serious: No
  Sender: FDA-Public Use
  Company Number: WAES 0807USA02446

PATIENT
  Age: 65 Year
  Sex: Female

DRUGS (5)
  1. JANUVIA [Suspect]
     Indication: DIABETES MELLITUS
     Dosage: PO
     Route: 048
     Dates: start: 20080709, end: 20080713
  2. DILANTIN [Concomitant]
  3. LANTUS [Concomitant]
  4. ANALGESIC OR ANESTHETIC [Concomitant]
  5. RAMIPRIL [Concomitant]

REACTIONS (4)
  - DYSPEPSIA [None]
  - DYSPHONIA [None]
  - NASAL CONGESTION [None]
  - OROPHARYNGEAL PAIN [None]
